FAERS Safety Report 7813065-1 (Version None)
Quarter: 2011Q4

REPORT INFORMATION
  Report Type: 
  Country: None (occurrence: None)
  Receive Date: 20111013
  Receipt Date: 20111007
  Transmission Date: 20120403
  Serious: Yes (Hospitalization, Disabling)
  Sender: FDA-Public Use
  Company Number: US-B.I. PHARMACEUTICALS,INC./RIDGEFIELD-2011-BP-20304BP

PATIENT
  Age: 63 Year
  Sex: Male
  Weight: 85.73 kg

DRUGS (6)
  1. METFORMIN HYDROCHLORIDE [Concomitant]
     Dosage: 1700 MG
     Route: 048
  2. ZOCOR [Concomitant]
     Dosage: 40 MG
     Route: 048
  3. JANUVIA [Concomitant]
     Dosage: 100 MG
     Route: 048
  4. ACTOS [Concomitant]
     Dosage: 15 MG
     Route: 048
  5. PRADAXA [Suspect]
     Indication: ATRIAL FIBRILLATION
     Dosage: 300 MG
     Route: 048
     Dates: start: 20110623, end: 20110813
  6. PLAVIX [Concomitant]
     Route: 048

REACTIONS (5)
  - HEMIPLEGIA [None]
  - CAROTID ARTERY OCCLUSION [None]
  - CEREBROVASCULAR ACCIDENT [None]
  - MUSCULAR WEAKNESS [None]
  - CEREBRAL ARTERY OCCLUSION [None]
